FAERS Safety Report 18946491 (Version 1)
Quarter: 2021Q1

REPORT INFORMATION
  Report Type: Spontaneous
  Country: CH (occurrence: CH)
  Receive Date: 20210226
  Receipt Date: 20210226
  Transmission Date: 20210420
  Serious: Yes (Other)
  Sender: FDA-Public Use
  Company Number: CH-ASTRAZENECA-2021A066230

PATIENT
  Age: 55 Year

DRUGS (9)
  1. FASENRA [Suspect]
     Active Substance: BENRALIZUMAB
     Dosage: 30.0MG UNKNOWN
     Route: 058
     Dates: start: 201909, end: 202008
  2. URSOCHOL [Concomitant]
     Active Substance: URSODIOL
     Route: 048
  3. PREDNISON STREULI [Concomitant]
     Active Substance: PREDNISONE
     Route: 048
  4. SPIRIVA [Concomitant]
     Active Substance: TIOTROPIUM BROMIDE MONOHYDRATE
     Route: 055
  5. ALVESCO [Concomitant]
     Active Substance: CICLESONIDE
     Route: 055
  6. PANTOPRAZOL MEPHA [Concomitant]
     Active Substance: PANTOPRAZOLE SODIUM
     Route: 048
  7. SPASMO URGENIN TROSPIUMCHLORID [Concomitant]
     Route: 048
  8. CETIRIZIN MEPHA [Concomitant]
     Route: 048
  9. SYMBICORT [Concomitant]
     Active Substance: BUDESONIDE\FORMOTEROL FUMARATE DIHYDRATE
     Dosage: EVERY 12 HOURS
     Route: 055

REACTIONS (1)
  - Leukopenia [Recovered/Resolved]

NARRATIVE: CASE EVENT DATE: 202004
